FAERS Safety Report 25075115 (Version 1)
Quarter: 2025Q1

REPORT INFORMATION
  Report Type: Spontaneous
  Country: CN (occurrence: CN)
  Receive Date: 20250313
  Receipt Date: 20250313
  Transmission Date: 20250409
  Serious: Yes (Other)
  Sender: MERCK SHARP & DOHME LLC
  Company Number: CN-009507513-2262913

PATIENT
  Age: 94 Year
  Sex: Male
  Weight: 70 kg

DRUGS (2)
  1. ERTAPENEM [Suspect]
     Active Substance: ERTAPENEM
     Indication: Urinary tract infection
     Dosage: 1G, QD
     Route: 041
     Dates: start: 20250226, end: 20250303
  2. SODIUM CHLORIDE [Concomitant]
     Active Substance: SODIUM CHLORIDE
     Indication: Medication dilution
     Dosage: CONCENTRATION 0.9%
     Route: 041
     Dates: start: 20250226, end: 20250303

REACTIONS (5)
  - Epilepsy [Recovering/Resolving]
  - Cough [Unknown]
  - Sputum increased [Unknown]
  - Tic [Recovering/Resolving]
  - Cyanosis [Recovering/Resolving]

NARRATIVE: CASE EVENT DATE: 20250304
